FAERS Safety Report 5068319-1 (Version None)
Quarter: 2006Q3

REPORT INFORMATION
  Report Type: 
  Country: None (occurrence: None)
  Receive Date: 20060802
  Receipt Date: 20050801
  Transmission Date: 20061208
  Serious: No
  Sender: FDA-Public Use
  Company Number: US-BRISTOL-MYERS SQUIBB COMPANY-13058524

PATIENT
  Age: 75 Year
  Sex: Male
  Weight: 73 kg

DRUGS (3)
  1. COUMADIN [Suspect]
     Dosage: STARTED 2 TO 3 YEARS AGO
     Route: 048
  2. ZANTAC [Concomitant]
  3. XALATAN [Concomitant]

REACTIONS (2)
  - FUNGAL INFECTION [None]
  - SCROTAL ERYTHEMA [None]
